FAERS Safety Report 6754574-6 (Version None)
Quarter: 2010Q2

REPORT INFORMATION
  Report Type: 
  Country: None (occurrence: None)
  Receive Date: 20100603
  Receipt Date: 20100527
  Transmission Date: 20101027
  Serious: Yes (Hospitalization, Other)
  Sender: FDA-Public Use
  Company Number: GB-ABBOTT-10P-229-0644902-00

PATIENT
  Age: 55 Year
  Sex: Male

DRUGS (5)
  1. LOPINAVIR/RITONAVIR [Suspect]
     Indication: HIV INFECTION
  2. ABACAVIR [Suspect]
     Indication: HIV INFECTION
  3. LAMIVUDINE [Suspect]
     Indication: HIV INFECTION
  4. EFAVIRENZ [Suspect]
     Indication: HIV INFECTION
  5. ZIDOVUDINE [Suspect]
     Indication: HIV INFECTION

REACTIONS (6)
  - AIDS ENCEPHALOPATHY [None]
  - BLOOD HIV RNA INCREASED [None]
  - COGNITIVE DISORDER [None]
  - CONFUSIONAL STATE [None]
  - MOBILITY DECREASED [None]
  - MULTIPLE-DRUG RESISTANCE [None]
